FAERS Safety Report 10205494 (Version 1)
Quarter: 2014Q2

REPORT INFORMATION
  Report Type: Spontaneous
  Country: TR (occurrence: TR)
  Receive Date: 20140529
  Receipt Date: 20140529
  Transmission Date: 20141212
  Serious: Yes (Other)
  Sender: FDA-Public Use
  Company Number: TR-MYLANLABS-2014S1011896

PATIENT
  Age: 80 Year
  Sex: Female

DRUGS (2)
  1. SUNITINIB [Suspect]
     Indication: METASTATIC RENAL CELL CARCINOMA
     Dosage: 25MG DAILY FOR 4 WEEKS OUT OF 6 WEEKS
     Route: 065
     Dates: start: 201003
  2. AMLODIPINE [Concomitant]
     Indication: ESSENTIAL HYPERTENSION
     Dosage: 5MG/DAY
     Route: 065

REACTIONS (2)
  - Hypertension [Unknown]
  - Acute pulmonary oedema [Unknown]
